FAERS Safety Report 14200663 (Version 1)
Quarter: 2017Q4

REPORT INFORMATION
  Report Type: Spontaneous
  Country: US (occurrence: US)
  Receive Date: 20171117
  Receipt Date: 20171117
  Transmission Date: 20180321
  Serious: Yes (Other)
  Sender: FDA-Public Use
  Company Number: US-NOVOPROD-536913

PATIENT
  Age: 34 Year
  Sex: Female

DRUGS (2)
  1. NOVOLOG [Suspect]
     Active Substance: INSULIN ASPART
     Indication: TYPE 1 DIABETES MELLITUS
     Dosage: SLIDING SCALE
     Route: 058
     Dates: start: 1999, end: 20120829
  2. NOVOLOG [Suspect]
     Active Substance: INSULIN ASPART
     Dosage: DECREASED SLIDING SCALE
     Route: 058
     Dates: start: 20120829

REACTIONS (4)
  - Hypoglycaemic unconsciousness [Recovered/Resolved]
  - Exposure during pregnancy [Recovered/Resolved]
  - Migraine [Recovered/Resolved]
  - Exposure during breast feeding [Recovered/Resolved]

NARRATIVE: CASE EVENT DATE: 2011
